FAERS Safety Report 4373909-5 (Version None)
Quarter: 2004Q2

REPORT INFORMATION
  Report Type: 
  Country: None (occurrence: None)
  Receive Date: 20040603
  Receipt Date: 20040519
  Transmission Date: 20050107
  Serious: Yes (Hospitalization)
  Sender: FDA-Public Use
  Company Number: JP-JNJFOC-20040305719

PATIENT
  Age: 51 Year
  Sex: Male
  Weight: 65 kg

DRUGS (10)
  1. REMICADE [Suspect]
     Indication: RHEUMATOID ARTHRITIS
     Dosage: SEE IMAGE
     Route: 042
     Dates: start: 20031105, end: 20031105
  2. REMICADE [Suspect]
     Indication: RHEUMATOID ARTHRITIS
     Dosage: SEE IMAGE
     Route: 042
     Dates: start: 20031119, end: 20031119
  3. REMICADE [Suspect]
     Indication: RHEUMATOID ARTHRITIS
     Dosage: SEE IMAGE
     Route: 042
     Dates: start: 20031217, end: 20031217
  4. REMICADE [Suspect]
     Indication: RHEUMATOID ARTHRITIS
     Dosage: SEE IMAGE
     Route: 042
     Dates: start: 20040212, end: 20040212
  5. PREDNISOLONE [Suspect]
     Indication: ARTHRALGIA
     Dosage: 5 MG, IN 1 DAY, ORAL
     Route: 048
  6. VOLTAREN [Concomitant]
  7. RIMATIL (BUCILLAMINE) [Concomitant]
  8. SELBEX (TEPRENONE) [Concomitant]
  9. RHEUMATREX [Concomitant]
  10. AZULFIDINE EN-TABS [Concomitant]

REACTIONS (6)
  - ARTHRITIS [None]
  - DISEASE PROGRESSION [None]
  - DRUG INTERACTION [None]
  - HIP FRACTURE [None]
  - MUSCULOSKELETAL PAIN [None]
  - PAIN [None]
